FAERS Safety Report 6676885-5 (Version None)
Quarter: 2010Q2

REPORT INFORMATION
  Report Type: 
  Country: None (occurrence: None)
  Receive Date: 20100409
  Receipt Date: 20100409
  Transmission Date: 20101027
  Serious: Yes (Other)
  Sender: FDA-Public Use
  Company Number: None

PATIENT
  Sex: Female
  Weight: 73.4827 kg

DRUGS (2)
  1. AROMASIN [Suspect]
     Indication: BREAST CANCER
     Dosage: 25 MG DAILY ORAL
     Route: 048
     Dates: start: 20091101, end: 20091201
  2. FEMARA [Suspect]
     Indication: BREAST CANCER
     Dosage: DAILY ORAL
     Route: 048
     Dates: start: 20090901, end: 20091101

REACTIONS (3)
  - HEADACHE [None]
  - LIVER FUNCTION TEST ABNORMAL [None]
  - NAUSEA [None]
